FAERS Safety Report 4933729-7 (Version None)
Quarter: 2006Q1

REPORT INFORMATION
  Report Type: 
  Country: None (occurrence: None)
  Receive Date: 20060306
  Receipt Date: 20060224
  Transmission Date: 20060701
  Serious: Yes (Hospitalization)
  Sender: FDA-Public Use
  Company Number: SE-ABBOTT-06P-150-0326077-00

PATIENT
  Age: 66 Year
  Sex: Female

DRUGS (11)
  1. HUMIRA [Suspect]
     Indication: PSORIASIS
     Route: 058
     Dates: start: 20060131, end: 20060131
  2. LANSOPRAZOLE [Concomitant]
     Indication: DRUG USE FOR UNKNOWN INDICATION
  3. DAIVOBET OINTMENT [Concomitant]
     Indication: DRUG USE FOR UNKNOWN INDICATION
  4. LEVOTHYROXINE SODIUM [Concomitant]
     Indication: DRUG USE FOR UNKNOWN INDICATION
  5. ACETAMINOPHEN [Concomitant]
     Indication: DRUG USE FOR UNKNOWN INDICATION
  6. FERROUS SULFATE TAB [Concomitant]
     Indication: DRUG USE FOR UNKNOWN INDICATION
     Route: 048
  7. LUCOID OINTMENT [Concomitant]
     Indication: DRUG USE FOR UNKNOWN INDICATION
  8. ELOCON [Concomitant]
     Indication: DRUG USE FOR UNKNOWN INDICATION
  9. DAIVONEX OINTMENT [Concomitant]
     Indication: DRUG USE FOR UNKNOWN INDICATION
  10. UNSPECIFIED DRUG [Concomitant]
     Indication: DRUG USE FOR UNKNOWN INDICATION
  11. NOBLIGAN RETARD [Concomitant]
     Indication: DRUG USE FOR UNKNOWN INDICATION
     Route: 048

REACTIONS (1)
  - PSORIASIS [None]
